FAERS Safety Report 9369900 (Version 1)
Quarter: 2013Q2

REPORT INFORMATION
  Report Type: Spontaneous
  Country: FR (occurrence: FR)
  Receive Date: 20130626
  Receipt Date: 20130626
  Transmission Date: 20140414
  Serious: Yes (Hospitalization)
  Sender: FDA-Public Use
  Company Number: FR-PFIZER INC-2013186763

PATIENT
  Age: 8 Year
  Sex: Female
  Weight: 29 kg

DRUGS (1)
  1. ADVIL [Suspect]
     Dosage: UNK
     Route: 048
     Dates: start: 20130326, end: 20130328

REACTIONS (3)
  - Cellulitis [Recovered/Resolved with Sequelae]
  - Lymphangitis [Recovered/Resolved with Sequelae]
  - Staphylococcal infection [Recovered/Resolved with Sequelae]
